FAERS Safety Report 20745103 (Version 1)
Quarter: 2022Q2

REPORT INFORMATION
  Report Type: Spontaneous
  Country: AU (occurrence: AU)
  Receive Date: 20220425
  Receipt Date: 20220425
  Transmission Date: 20220721
  Serious: Yes (Other)
  Sender: FDA-Public Use
  Company Number: AU-MYLANLABS-2022M1029503

PATIENT
  Sex: Female

DRUGS (1)
  1. CLOZARIL [Suspect]
     Active Substance: CLOZAPINE
     Indication: Schizophrenia
     Dosage: 62 MILLIGRAM
     Route: 048
     Dates: start: 20180526

REACTIONS (3)
  - Troponin increased [Unknown]
  - C-reactive protein increased [Unknown]
  - Eosinophil count increased [Unknown]
